FAERS Safety Report 5720642-0 (Version None)
Quarter: 2008Q2

REPORT INFORMATION
  Report Type: 
  Country: None (occurrence: None)
  Receive Date: 20080429
  Receipt Date: 20080417
  Transmission Date: 20081010
  Serious: Yes (Other)
  Sender: FDA-Public Use
  Company Number: FR-JNJFOC-20080402246

PATIENT
  Sex: Female
  Weight: 81 kg

DRUGS (6)
  1. IMODIUM [Suspect]
     Indication: DIARRHOEA
     Route: 048
  2. DEROXAT [Concomitant]
     Indication: DEPRESSION
  3. LAROXYL [Concomitant]
  4. ATORVASTATIN CALCIUM [Concomitant]
     Indication: HYPERCHOLESTEROLAEMIA
  5. SYMBICORT [Concomitant]
     Indication: ASTHMA
  6. PARACETAMOL [Concomitant]
     Indication: HEADACHE

REACTIONS (1)
  - AMNESIA [None]
